FAERS Safety Report 8888341 (Version 2)
Quarter: 2012Q4

REPORT INFORMATION
  Report Type: 
  Country: US (occurrence: US)
  Receive Date: 20121106
  Receipt Date: 20121112
  Transmission Date: 20130627
  Serious: No
  Sender: FDA-Public Use
  Company Number: US-PFIZER INC-2012273353

PATIENT
  Age: 59 Year
  Sex: Male
  Weight: 109 kg

DRUGS (4)
  1. VIAGRA [Suspect]
     Indication: ERECTILE DYSFUNCTION
     Dosage: 50 mg, as needed
     Route: 048
     Dates: start: 20121001
  2. CELEBREX [Concomitant]
     Indication: ARTHRITIS
     Dosage: 200 mg, daily
  3. TRAZODONE [Concomitant]
     Indication: SLEEP PROBLEM
     Dosage: 400 mg, daily
  4. AMBIEN [Concomitant]
     Indication: SLEEP PROBLEM
     Dosage: 10 mg, 1x/day

REACTIONS (2)
  - Drug ineffective [Unknown]
  - Somnolence [Unknown]
